FAERS Safety Report 7232663-X (Version None)
Quarter: 2011Q1

REPORT INFORMATION
  Report Type: 
  Country: None (occurrence: None)
  Receive Date: 20110119
  Receipt Date: 20110114
  Transmission Date: 20110831
  Serious: Yes (Hospitalization)
  Sender: FDA-Public Use
  Company Number: JP-BAYER-200910956BYL

PATIENT
  Sex: Male
  Weight: 53 kg

DRUGS (2)
  1. NEXAVAR [Suspect]
     Indication: RENAL CELL CARCINOMA STAGE IV
     Dosage: 800 MG (DAILY DOSE), , ORAL
     Route: 048
     Dates: start: 20081006, end: 20081031
  2. NEXAVAR [Suspect]
     Dosage: 400 MG (DAILY DOSE), , ORAL
     Route: 048
     Dates: start: 20081114, end: 20090326

REACTIONS (7)
  - LIPASE INCREASED [None]
  - HAEMOTHORAX [None]
  - RASH [None]
  - ERYTHEMA [None]
  - HYPERTENSION [None]
  - WHITE BLOOD CELL COUNT INCREASED [None]
  - PROTHROMBIN LEVEL INCREASED [None]
